FAERS Safety Report 6960076-4 (Version None)
Quarter: 2010Q3

REPORT INFORMATION
  Report Type: 
  Country: None (occurrence: None)
  Receive Date: 20100901
  Receipt Date: 20100820
  Transmission Date: 20110219
  Serious: Yes (Hospitalization)
  Sender: FDA-Public Use
  Company Number: TW-PERRIGO-10TW012403

PATIENT
  Age: 65 Year
  Sex: Male

DRUGS (10)
  1. NAPROXEN SODIUM [Suspect]
     Indication: PRODUCT USED FOR UNKNOWN INDICATION
     Dosage: UNK
     Route: 048
  2. LEVOFLOXACIN [Concomitant]
     Indication: PRODUCT USED FOR UNKNOWN INDICATION
     Route: 065
  3. ACARBOSE [Concomitant]
     Indication: DIABETES MELLITUS
  4. GLIMEPIRIDE [Concomitant]
     Indication: DIABETES MELLITUS
     Route: 048
  5. TAMSULOSIN HCL [Concomitant]
     Indication: BENIGN PROSTATIC HYPERPLASIA
     Route: 048
  6. TOLTERODINE [Concomitant]
     Indication: BENIGN PROSTATIC HYPERPLASIA
     Route: 048
  7. CEFAZOLIN [Concomitant]
     Indication: PYREXIA
     Route: 042
  8. GENTAMICIN [Concomitant]
     Indication: PYREXIA
     Route: 042
  9. ACETAMINOPHEN [Concomitant]
     Indication: PYREXIA
     Route: 048
  10. METOCLOPRAMIDE [Concomitant]
     Indication: PYREXIA
     Route: 065

REACTIONS (9)
  - ASPARTATE AMINOTRANSFERASE INCREASED [None]
  - BLOOD ALKALINE PHOSPHATASE INCREASED [None]
  - EOSINOPHILIA [None]
  - LEUKOCYTOSIS [None]
  - LYMPHOCYTE MORPHOLOGY ABNORMAL [None]
  - PRURITUS [None]
  - PSEUDOLYMPHOMA [None]
  - PYREXIA [None]
  - RASH MACULO-PAPULAR [None]
